FAERS Safety Report 7623028-7 (Version None)
Quarter: 2011Q3

REPORT INFORMATION
  Report Type: 
  Country: None (occurrence: None)
  Receive Date: 20110720
  Receipt Date: 20110713
  Transmission Date: 20111222
  Serious: Yes (Other)
  Sender: FDA-Public Use
  Company Number: US-GILEAD-2011-0041822

PATIENT
  Age: 47 Year
  Sex: Female

DRUGS (1)
  1. LETAIRIS [Suspect]
     Indication: PRODUCT USED FOR UNKNOWN INDICATION
     Route: 048
     Dates: start: 20110126

REACTIONS (4)
  - HEAD INJURY [None]
  - HAEMORRHAGE [None]
  - TRANSIENT ISCHAEMIC ATTACK [None]
  - INJURY [None]
